FAERS Safety Report 15493555 (Version 1)
Quarter: 2018Q4

REPORT INFORMATION
  Report Type: Spontaneous
  Country: US (occurrence: US)
  Receive Date: 20181004
  Receipt Date: 20181004
  Transmission Date: 20190205
  Serious: Yes (Life-Threatening, Hospitalization)
  Sender: FDA-Public Use
  Company Number: None

PATIENT
  Age: 49 Year
  Sex: Female
  Weight: 68.4 kg

DRUGS (1)
  1. FERRLECIT [Suspect]
     Active Substance: SODIUM FERRIC GLUCONATE COMPLEX
     Indication: IRON DEFICIENCY
     Dosage: ?          OTHER FREQUENCY:ONCE;?
     Route: 041

REACTIONS (3)
  - Hyperhidrosis [None]
  - Drug intolerance [None]
  - Back pain [None]

NARRATIVE: CASE EVENT DATE: 20181002
